FAERS Safety Report 6451574-0 (Version None)
Quarter: 2009Q4

REPORT INFORMATION
  Report Type: 
  Country: None (occurrence: None)
  Receive Date: 20091120
  Receipt Date: 20091120
  Transmission Date: 20100525
  Serious: Yes (Other)
  Sender: FDA-Public Use
  Company Number: None

PATIENT
  Age: 60 Year
  Sex: Female
  Weight: 77.1115 kg

DRUGS (2)
  1. CYCLOMYDRIL [Suspect]
     Indication: INTRAOCULAR LENS IMPLANT
     Dosage: SUBCONJUCTIVAL SIBGLE DOSE ADMINISTRATED
     Route: 057
     Dates: start: 20090930, end: 20090930
  2. CYCLOMYDRIL [Suspect]
     Indication: INTRAOCULAR LENS IMPLANT
     Dosage: SUBCONJUCTIVAL SIBGLE DOSE ADMINISTRATED
     Route: 057
     Dates: start: 20091118, end: 20091118

REACTIONS (4)
  - BLOOD PRESSURE INCREASED [None]
  - HEART RATE INCREASED [None]
  - HYPERLIPIDAEMIA [None]
  - TRANSIENT ISCHAEMIC ATTACK [None]
